FAERS Safety Report 25509262 (Version 1)
Quarter: 2025Q3

REPORT INFORMATION
  Report Type: Spontaneous
  Country: CA (occurrence: CA)
  Receive Date: 20250703
  Receipt Date: 20250703
  Transmission Date: 20251021
  Serious: Yes (Other)
  Sender: TEVA
  Company Number: CA-TEVA-VS-3346797

PATIENT
  Age: 50 Year
  Sex: Female

DRUGS (6)
  1. LETROZOLE [Suspect]
     Active Substance: LETROZOLE
     Indication: Breast cancer metastatic
     Route: 048
  2. PAMIDRONATE DISODIUM [Suspect]
     Active Substance: PAMIDRONATE DISODIUM
     Indication: Product used for unknown indication
     Dosage: PAMIDRONATE DISODIUM FOR INJECTION, DOSE FORM: NOT SPECIFIED
     Route: 042
  3. CLODRONATE DISODIUM [Suspect]
     Active Substance: CLODRONATE DISODIUM
     Indication: Product used for unknown indication
     Route: 065
  4. GOSERELIN [Suspect]
     Active Substance: GOSERELIN
     Indication: Product used for unknown indication
     Route: 065
  5. GOSERELIN [Suspect]
     Active Substance: GOSERELIN
     Indication: Product used for unknown indication
     Route: 065
  6. TAMOXIFEN [Suspect]
     Active Substance: TAMOXIFEN
     Indication: Product used for unknown indication
     Route: 065

REACTIONS (2)
  - Malignant neoplasm progression [Unknown]
  - Breast cancer [Unknown]
